FAERS Safety Report 22010570 (Version 1)
Quarter: 2023Q1

REPORT INFORMATION
  Report Type: Spontaneous
  Country: US (occurrence: US)
  Receive Date: 20230220
  Receipt Date: 20230220
  Transmission Date: 20230418
  Serious: No
  Sender: FDA-Public Use
  Company Number: US-PERRIGO-22US003968

PATIENT
  Age: 78 Year
  Sex: Female

DRUGS (1)
  1. NAPROXEN SODIUM [Suspect]
     Active Substance: NAPROXEN SODIUM
     Indication: Back pain
     Dosage: 440 MG, Q 8 TO 10 HOURS
     Route: 048
     Dates: start: 20220216

REACTIONS (5)
  - Constipation [Recovered/Resolved]
  - Drug effect less than expected [Unknown]
  - Therapeutic response unexpected [Unknown]
  - Incorrect product administration duration [Unknown]
  - Incorrect dose administered [Unknown]

NARRATIVE: CASE EVENT DATE: 20220216
